FAERS Safety Report 23748516 (Version 1)
Quarter: 2024Q2

REPORT INFORMATION
  Report Type: Spontaneous
  Country: US (occurrence: US)
  Receive Date: 20240416
  Receipt Date: 20240416
  Transmission Date: 20240715
  Serious: Yes (Hospitalization)
  Sender: FDA-Public Use
  Company Number: US-GSKCCFUS-Case-01986214_AE-110265

PATIENT

DRUGS (1)
  1. TRELEGY ELLIPTA [Suspect]
     Active Substance: FLUTICASONE FUROATE\UMECLIDINIUM BROMIDE\VILANTEROL TRIFENATATE
     Indication: Chronic obstructive pulmonary disease
     Dosage: UNK (SWITCHED FROM TRELEGY 100 TO TRELEGY 200)
     Route: 055

REACTIONS (3)
  - Ill-defined disorder [Unknown]
  - Gait disturbance [Unknown]
  - Product use in unapproved indication [Unknown]
